FAERS Safety Report 12388803 (Version 1)
Quarter: 2016Q2

REPORT INFORMATION
  Report Type: Spontaneous
  Country: US (occurrence: None)
  Receive Date: 20160519
  Receipt Date: 20160519
  Transmission Date: 20160815
  Serious: Yes (Other)
  Sender: FDA-Public Use
  Company Number: None

PATIENT
  Age: 73 Year
  Sex: Male
  Weight: 67.8 kg

DRUGS (12)
  1. OSCAL [Concomitant]
     Active Substance: CALCIUM CARBONATE
  2. MAGNESIUM OXIDE. [Concomitant]
     Active Substance: MAGNESIUM OXIDE
  3. GLIMEPIRIDE, 2 MG [Suspect]
     Active Substance: GLIMEPIRIDE
     Indication: DIABETES MELLITUS
     Route: 048
     Dates: start: 20160517, end: 20160518
  4. METOPROLOL SUCCINATE. [Concomitant]
     Active Substance: METOPROLOL SUCCINATE
  5. BUMETANIDE. [Concomitant]
     Active Substance: BUMETANIDE
  6. HYDROXYUREA. [Concomitant]
     Active Substance: HYDROXYUREA
  7. CLOBETASOL [Concomitant]
     Active Substance: CLOBETASOL
  8. CLOPIDOGREL [Concomitant]
     Active Substance: CLOPIDOGREL BISULFATE
  9. FINASTERIDE. [Concomitant]
     Active Substance: FINASTERIDE
  10. NICOTINIC ACID [Concomitant]
     Active Substance: NIACIN
  11. ASTELIN [Concomitant]
     Active Substance: AZELASTINE HYDROCHLORIDE
  12. POTASSIUM [Concomitant]
     Active Substance: POTASSIUM

REACTIONS (2)
  - Feeling hot [None]
  - Rash erythematous [None]

NARRATIVE: CASE EVENT DATE: 20160518
